FAERS Safety Report 16469942 (Version 1)
Quarter: 2019Q2

REPORT INFORMATION
  Report Type: Spontaneous
  Country: US (occurrence: US)
  Receive Date: 20190514
  Receipt Date: 20190514
  Transmission Date: 20190711
  Serious: No
  Sender: FDA-Public Use
  Company Number: None

PATIENT
  Age: 19 Year
  Sex: Female

DRUGS (1)
  1. EPOGEN [Suspect]
     Active Substance: ERYTHROPOIETIN
     Indication: ANAEMIA
     Dosage: ?          OTHER
     Route: 058
     Dates: start: 201902

REACTIONS (4)
  - Injection site reaction [None]
  - Injection site erythema [None]
  - Injection site irritation [None]
  - Injection site rash [None]

NARRATIVE: CASE EVENT DATE: 20190514
